FAERS Safety Report 7259463-9 (Version None)
Quarter: 2011Q1

REPORT INFORMATION
  Report Type: 
  Country: None (occurrence: None)
  Receive Date: 20110129
  Receipt Date: 20100820
  Transmission Date: 20110831
  Serious: No
  Sender: FDA-Public Use
  Company Number: US-ABBOTT-10P-163-0666609-00

PATIENT
  Sex: Female
  Weight: 99.88 kg

DRUGS (8)
  1. LUNESTA [Concomitant]
     Indication: SLEEP DISORDER THERAPY
  2. HUMIRA [Suspect]
     Indication: RHEUMATOID ARTHRITIS
     Dosage: 2003-2004
     Dates: start: 20100806
  3. VICODIN [Concomitant]
     Indication: PAIN
  4. FOLIC ACID [Concomitant]
     Indication: RHEUMATOID ARTHRITIS
  5. PREDNISONE [Concomitant]
     Indication: RHEUMATOID ARTHRITIS
  6. OXYCONTIN [Concomitant]
     Indication: PAIN
  7. OMEPRAZOLE [Concomitant]
     Indication: HIATUS HERNIA
  8. METHOTREXATE [Concomitant]
     Indication: RHEUMATOID ARTHRITIS

REACTIONS (5)
  - SKIN BURNING SENSATION [None]
  - ARTHROPOD BITE [None]
  - DEVICE MALFUNCTION [None]
  - INCORRECT ROUTE OF DRUG ADMINISTRATION [None]
  - ERYTHEMA [None]
